FAERS Safety Report 8997151 (Version 1)
Quarter: 2013Q1

REPORT INFORMATION
  Report Type: Spontaneous
  Country: US (occurrence: None)
  Receive Date: 20130102
  Receipt Date: 20130102
  Transmission Date: 20140127
  Serious: Yes (Hospitalization)
  Sender: FDA-Public Use
  Company Number: None

PATIENT
  Age: 74 Year
  Sex: Male
  Weight: 78 kg

DRUGS (2)
  1. AZACITIDINE [Suspect]
     Dosage: DAYS 1-5
     Route: 042
     Dates: start: 20120917, end: 20121207
  2. LENALIDOMIDE [Suspect]
     Route: 048
     Dates: start: 20120917, end: 20121228

REACTIONS (3)
  - Neutropenia [None]
  - Chills [None]
  - Malaise [None]
